FAERS Safety Report 9029511 (Version 3)
Quarter: 2013Q2

REPORT INFORMATION
  Report Type: Spontaneous
  Country: JP (occurrence: JP)
  Receive Date: 20130125
  Receipt Date: 20130603
  Transmission Date: 20140414
  Serious: Yes (Hospitalization)
  Sender: FDA-Public Use
  Company Number: JP-ABBOTT-12P-087-1026506-00

PATIENT
  Age: 26 Year
  Sex: Male
  Weight: 67 kg

DRUGS (2)
  1. CLARITH [Suspect]
     Indication: UPPER RESPIRATORY TRACT INFLAMMATION
     Route: 048
     Dates: start: 20121119, end: 20121130
  2. ROCEPHIN [Concomitant]
     Indication: UPPER RESPIRATORY TRACT INFLAMMATION
     Route: 042
     Dates: start: 20121113, end: 20121206

REACTIONS (1)
  - Enterocolitis haemorrhagic [Recovering/Resolving]
